FAERS Safety Report 15419658 (Version 1)
Quarter: 2018Q3

REPORT INFORMATION
  Report Type: Spontaneous
  Country: US (occurrence: US)
  Receive Date: 20180924
  Receipt Date: 20180924
  Transmission Date: 20181010
  Serious: No
  Sender: FDA-Public Use
  Company Number: US-PFIZER INC-2018384427

PATIENT
  Age: 61 Year
  Sex: Female
  Weight: 66 kg

DRUGS (1)
  1. LYRICA [Suspect]
     Active Substance: PREGABALIN
     Indication: FIBROMYALGIA
     Dosage: 50 MG, 2X/DAY [TAKE ONE 50MG BY MOUTH TWICE A DAY]
     Route: 048

REACTIONS (2)
  - Feeling abnormal [Recovering/Resolving]
  - Inflammation [Unknown]
